FAERS Safety Report 10398662 (Version 1)
Quarter: 2014Q3

REPORT INFORMATION
  Report Type: Spontaneous
  Country: US (occurrence: US)
  Receive Date: 20140821
  Receipt Date: 20140821
  Transmission Date: 20150326
  Serious: Yes (Hospitalization)
  Sender: FDA-Public Use
  Company Number: US-ASTRAZENECA-2014SE59791

PATIENT
  Age: 49 Year
  Sex: Female
  Weight: 93 kg

DRUGS (11)
  1. ENTOCORT [Suspect]
     Active Substance: BUDESONIDE
     Indication: CROHN^S DISEASE
     Route: 048
     Dates: start: 201407
  2. PREDNISONE. [Suspect]
     Active Substance: PREDNISONE
     Indication: COLITIS ULCERATIVE
     Route: 065
     Dates: start: 201407
  3. HUMIRA [Suspect]
     Active Substance: ADALIMUMAB
     Indication: COLITIS ULCERATIVE
     Route: 065
     Dates: start: 2007
  4. HUMIRA [Suspect]
     Active Substance: ADALIMUMAB
     Indication: CROHN^S DISEASE
     Route: 065
     Dates: start: 2007
  5. XANAX [Concomitant]
     Active Substance: ALPRAZOLAM
  6. ENTOCORT [Suspect]
     Active Substance: BUDESONIDE
     Indication: COLITIS ULCERATIVE
     Route: 048
     Dates: start: 201407
  7. PREDNISONE. [Suspect]
     Active Substance: PREDNISONE
     Indication: CROHN^S DISEASE
     Route: 065
     Dates: start: 201407
  8. NICOTINE. [Concomitant]
     Active Substance: NICOTINE
     Route: 062
     Dates: start: 201407, end: 201407
  9. PERCOCET (TYLOX) [Concomitant]
  10. PRAVASTATIN [Concomitant]
     Active Substance: PRAVASTATIN\PRAVASTATIN SODIUM
     Route: 065
  11. NEURONTIN [Concomitant]
     Active Substance: GABAPENTIN

REACTIONS (7)
  - Colitis ulcerative [Unknown]
  - Weight increased [Unknown]
  - Abdominal distension [Unknown]
  - Nerve injury [Unknown]
  - Diarrhoea [Unknown]
  - Crohn^s disease [Unknown]
  - Constipation [Recovered/Resolved]

NARRATIVE: CASE EVENT DATE: 2014
